FAERS Safety Report 6382294-9 (Version None)
Quarter: 2009Q3

REPORT INFORMATION
  Report Type: 
  Country: None (occurrence: None)
  Receive Date: 20090928
  Receipt Date: 20090928
  Transmission Date: 20100115
  Serious: Yes (Other)
  Sender: FDA-Public Use
  Company Number: None

PATIENT
  Age: 60 Year
  Sex: Female
  Weight: 88.4514 kg

DRUGS (2)
  1. TRAMADOL HCL [Suspect]
     Indication: KNEE ARTHROPLASTY
     Dosage: 50MG EVERY 4 HOURS BY MOUTH
     Route: 048
     Dates: start: 20090911, end: 20090913
  2. TRAMADOL HCL [Suspect]
     Indication: PAIN
     Dosage: 50MG EVERY 4 HOURS BY MOUTH
     Route: 048
     Dates: start: 20090911, end: 20090913

REACTIONS (8)
  - ANXIETY [None]
  - DECREASED APPETITE [None]
  - DEPRESSION [None]
  - DYSGEUSIA [None]
  - FEELING COLD [None]
  - FLUID INTAKE REDUCED [None]
  - INSOMNIA [None]
  - PAROSMIA [None]
